FAERS Safety Report 7498862-7 (Version None)
Quarter: 2011Q2

REPORT INFORMATION
  Report Type: 
  Country: None (occurrence: None)
  Receive Date: 20110524
  Receipt Date: 20110429
  Transmission Date: 20111010
  Serious: Yes (Hospitalization, Other)
  Sender: FDA-Public Use
  Company Number: US-BAYER-201025593NA

PATIENT
  Age: 25 Year
  Sex: Female
  Weight: 90.703 kg

DRUGS (6)
  1. ADVIL LIQUI-GELS [Concomitant]
  2. YASMIN [Suspect]
     Indication: CONTRACEPTION
     Route: 048
     Dates: start: 20070901, end: 20090605
  3. BUSPIRONE HCL [Concomitant]
     Indication: STRESS
     Dosage: UNK
     Dates: start: 20090101
  4. DROSPIRENONE AND ETHINYL ESTRADIOL [Suspect]
     Dosage: UNK UNK, UNK
     Route: 065
     Dates: start: 20090501, end: 20090605
  5. NAPROXEN (ALEVE) [Concomitant]
     Dosage: UNK UNK, PRN
  6. DROSPIRENONE AND ETHINYL ESTRADIOL [Suspect]
     Indication: CONTRACEPTION
     Dosage: UNK
     Dates: start: 20080701, end: 20080901

REACTIONS (10)
  - COGNITIVE DISORDER [None]
  - ISCHAEMIC STROKE [None]
  - DYSGRAPHIA [None]
  - LEARNING DISORDER [None]
  - ASTHENIA [None]
  - STRESS [None]
  - SPEECH DISORDER [None]
  - HYPOAESTHESIA [None]
  - VISUAL IMPAIRMENT [None]
  - READING REHABILITATION [None]
